FAERS Safety Report 15851562 (Version 2)
Quarter: 2019Q2

REPORT INFORMATION
  Report Type: Report from Study
  Country: IT (occurrence: IT)
  Receive Date: 20190122
  Receipt Date: 20190527
  Transmission Date: 20190711
  Serious: Yes (Other)
  Sender: FDA-Public Use
  Company Number: IT-ROCHE-2247617

PATIENT
  Age: 31 Year
  Sex: Male

DRUGS (1)
  1. PEGASYS [Suspect]
     Active Substance: PEGINTERFERON ALFA-2A
     Indication: HEPATITIS B
     Route: 042
     Dates: start: 20180321, end: 20180321

REACTIONS (5)
  - Feeling cold [Recovering/Resolving]
  - Euphoric mood [Recovering/Resolving]
  - Paraesthesia [Recovering/Resolving]
  - Hyperpyrexia [Recovering/Resolving]
  - Muscle contracture [Recovering/Resolving]

NARRATIVE: CASE EVENT DATE: 20180321
